FAERS Safety Report 13353479 (Version 1)
Quarter: 2017Q1

REPORT INFORMATION
  Report Type: Spontaneous
  Country: CA (occurrence: CA)
  Receive Date: 20170321
  Receipt Date: 20170321
  Transmission Date: 20170429
  Serious: Yes (Life-Threatening, Other)
  Sender: FDA-Public Use
  Company Number: CA-TEVA-751365ACC

PATIENT
  Age: 20 Year
  Sex: Female
  Weight: 118 kg

DRUGS (1)
  1. APRI 21 [Suspect]
     Active Substance: DESOGESTREL\ETHINYL ESTRADIOL
     Indication: CONTRACEPTION
     Dosage: 1 DOSAGE FORMS DAILY;
     Route: 048

REACTIONS (3)
  - Depression [Recovering/Resolving]
  - Intentional self-injury [Recovering/Resolving]
  - Suicidal ideation [Recovering/Resolving]
